FAERS Safety Report 7794348-0 (Version None)
Quarter: 2011Q4

REPORT INFORMATION
  Report Type: 
  Country: None (occurrence: None)
  Receive Date: 20111004
  Receipt Date: 20111001
  Transmission Date: 20120403
  Serious: Yes (Hospitalization)
  Sender: FDA-Public Use
  Company Number: US-PFIZER INC-2011211261

PATIENT
  Sex: Male
  Weight: 66 kg

DRUGS (10)
  1. SPIRIVA [Concomitant]
     Indication: CHRONIC OBSTRUCTIVE PULMONARY DISEASE
     Dosage: 160/45
     Route: 055
  2. CENTRUM SILVER [Concomitant]
     Dosage: 1 PILL, 1X/DAY
     Route: 048
  3. VITAMIN B6 [Concomitant]
     Indication: NEUROPATHY PERIPHERAL
     Dosage: 50 MG, 1X/DAY
     Route: 048
  4. ERLOTINIB HYDROCHLORIDE [Suspect]
     Indication: NON-SMALL CELL LUNG CANCER
     Dosage: 100 MG, 1X/DAY, CONTINUOUS
     Route: 048
     Dates: start: 20110823, end: 20110911
  5. DIOVAN [Concomitant]
     Indication: HYPERTENSION
     Dosage: 160/25MG, QOD
     Route: 048
  6. NEURONTIN [Concomitant]
     Indication: NEUROPATHY PERIPHERAL
     Dosage: 300 MG, 1X/DAY
     Route: 048
  7. ASPIRIN [Concomitant]
     Indication: CORONARY ARTERIAL STENT INSERTION
     Dosage: 325 MG, 1X/DAY
     Route: 048
  8. CRIZOTINIB [Suspect]
     Indication: NON-SMALL CELL LUNG CANCER
     Dosage: 150 MG, 2X/DAY, CONTINUOUS
     Route: 048
     Dates: start: 20110830, end: 20110911
  9. COMBIVENT [Concomitant]
     Indication: CHRONIC OBSTRUCTIVE PULMONARY DISEASE
     Dosage: 2 PUFFS
     Route: 055
  10. LOMOTIL [Concomitant]
     Indication: DIARRHOEA
     Dosage: 2 MG, 2 TABLETS, AS NEEDED
     Route: 048
     Dates: start: 20110830

REACTIONS (2)
  - DEHYDRATION [None]
  - DIARRHOEA [None]
